FAERS Safety Report 17279625 (Version 2)
Quarter: 2022Q4

REPORT INFORMATION
  Report Type: Spontaneous
  Country: US (occurrence: US)
  Receive Date: 20200116
  Receipt Date: 20221201
  Transmission Date: 20230112
  Serious: Yes (Hospitalization)
  Sender: FDA-Public Use
  Company Number: US-NOVARTISTESTPH-NVSC2020US010304

PATIENT
  Sex: Female

DRUGS (1)
  1. VOTRIENT [Suspect]
     Active Substance: PAZOPANIB HYDROCHLORIDE
     Indication: Product used for unknown indication
     Dosage: 500 MG, QD (STARTED VOTRIENT A WEEK AGO)
     Route: 065

REACTIONS (3)
  - Sepsis [Unknown]
  - Lacrimation increased [Unknown]
  - Visual impairment [Unknown]
